FAERS Safety Report 21361994 (Version 1)
Quarter: 2022Q3

REPORT INFORMATION
  Report Type: Report from Study
  Country: US (occurrence: US)
  Receive Date: 20220922
  Receipt Date: 20220922
  Transmission Date: 20221027
  Serious: Yes (Hospitalization, Other)
  Sender: FDA-Public Use
  Company Number: US-BRISTOL-MYERS SQUIBB COMPANY-2022-098697

PATIENT
  Age: 68 Year
  Sex: Male
  Weight: 71.21 kg

DRUGS (1)
  1. REVLIMID [Suspect]
     Active Substance: LENALIDOMIDE
     Indication: Plasma cell myeloma
     Dosage: ON DAYS 1-14,21 DAYS SCHEDULE
     Route: 048
     Dates: start: 20220719

REACTIONS (9)
  - Dehydration [Unknown]
  - Eating disorder [Unknown]
  - Dysgeusia [Unknown]
  - Weight decreased [Unknown]
  - Diarrhoea [Unknown]
  - Nausea [Unknown]
  - Asthenia [Unknown]
  - Hypotension [Unknown]
  - Off label use [Unknown]
